FAERS Safety Report 5307699-6 (Version None)
Quarter: 2007Q2

REPORT INFORMATION
  Report Type: 
  Country: None (occurrence: None)
  Receive Date: 20070418
  Receipt Date: 20070411
  Transmission Date: 20071010
  Serious: Yes (Life-Threatening, Hospitalization)
  Sender: FDA-Public Use
  Company Number: S07-USA-01560-01

PATIENT
  Age: 82 Year
  Sex: Female

DRUGS (9)
  1. NAMENDA [Suspect]
     Indication: DEMENTIA
     Dosage: 5 MG BID PO
     Route: 048
  2. CLONIDINE [Concomitant]
  3. DIOVAN [Concomitant]
  4. METOPROLOL SUCCINATE [Concomitant]
  5. PROCARDIA [Concomitant]
  6. AMARYL [Concomitant]
  7. NITROGLYCERIN [Concomitant]
  8. SEROQUEL [Concomitant]
  9. DESYRL (TRAZODONE) [Concomitant]

REACTIONS (8)
  - ASCITES [None]
  - CARDIOMEGALY [None]
  - CONDITION AGGRAVATED [None]
  - DYSPNOEA [None]
  - HYPERTENSION [None]
  - MENTAL STATUS CHANGES [None]
  - NEPHROLITHIASIS [None]
  - TACHYCARDIA [None]
